FAERS Safety Report 7260996-X (Version None)
Quarter: 2011Q1

REPORT INFORMATION
  Report Type: 
  Country: None (occurrence: None)
  Receive Date: 20110130
  Receipt Date: 20101123
  Transmission Date: 20110831
  Serious: No
  Sender: FDA-Public Use
  Company Number: US-ABBOTT-10P-163-0687400-00

PATIENT
  Age: 57 Year
  Sex: Male

DRUGS (8)
  1. PAXIL [Concomitant]
     Indication: ANXIETY
  2. CALCIUM WITH VITAMIN D [Concomitant]
     Indication: PRODUCT USED FOR UNKNOWN INDICATION
  3. WELLBUTRIN [Concomitant]
     Indication: DEPRESSION
  4. AZATHIOPRINE [Concomitant]
     Indication: IMMUNOSUPPRESSION
  5. HUMIRA [Suspect]
     Indication: CROHN'S DISEASE
     Dates: start: 20080101
  6. PAXIL [Concomitant]
     Indication: DEPRESSION
  7. VITAMIN D [Concomitant]
     Indication: OSTEOPOROSIS
  8. WELLBUTRIN [Concomitant]
     Indication: ANXIETY

REACTIONS (1)
  - NASOPHARYNGITIS [None]
